FAERS Safety Report 5449753-4 (Version None)
Quarter: 2007Q3

REPORT INFORMATION
  Report Type: 
  Country: None (occurrence: None)
  Receive Date: 20070910
  Receipt Date: 20070829
  Transmission Date: 20080115
  Serious: Yes (Hospitalization)
  Sender: FDA-Public Use
  Company Number: GXKR2007GB07481

PATIENT
  Age: 82 Year
  Sex: Female

DRUGS (18)
  1. GABAPENTIN [Suspect]
     Indication: PAIN
     Dosage: 300 MG, QID, ORAL
     Route: 048
  2. ALENDRONIC ACID (ALENDRONIC ACID) [Concomitant]
  3. ALFACALCIDOL (ALFACALCIDOL) [Concomitant]
  4. AMLODIPINE [Concomitant]
  5. ASPIRIN [Concomitant]
  6. BECLOMETHASONE DIPROPIONATE [Concomitant]
  7. CALCIUM CARBONATE (CALCIUM CARBONATE) [Concomitant]
  8. DOCUSATE (DOCUSATE) [Concomitant]
  9. FERROUS SULPHATE (FERROUS SULFATE) [Concomitant]
  10. FUROSEMIDE [Concomitant]
  11. ISOSORBIDE MONONITRATE [Concomitant]
  12. MIXTARD HUMAN 70/30 [Concomitant]
  13. NEOMYCIN (NEOMYCIN) [Concomitant]
  14. OMEPRAZOLE [Concomitant]
  15. QUININE SULFATE [Concomitant]
  16. SENNA (SENNA, SENNA ALEXANDRINA) [Concomitant]
  17. SIMVASTATIN [Concomitant]
  18. TRAMADOL HCL [Concomitant]

REACTIONS (2)
  - JAUNDICE [None]
  - LIVER FUNCTION TEST ABNORMAL [None]
